FAERS Safety Report 23775956 (Version 2)
Quarter: 2024Q2

REPORT INFORMATION
  Report Type: Spontaneous
  Country: FR (occurrence: FR)
  Receive Date: 20240424
  Receipt Date: 20240426
  Transmission Date: 20240716
  Serious: Yes (Hospitalization)
  Sender: FDA-Public Use
  Company Number: FR-CELLTRION INC.-2024FR009275

PATIENT

DRUGS (11)
  1. RITUXIMAB [Suspect]
     Active Substance: RITUXIMAB
     Indication: Immune thrombocytopenia
     Dosage: 1 GRAM, EVERY 1 DAY
     Route: 042
     Dates: start: 20210720
  2. ELTROMBOPAG OLAMINE [Suspect]
     Active Substance: ELTROMBOPAG OLAMINE
     Indication: Immune thrombocytopenia
     Dosage: 25 MG, DAILY
     Route: 048
     Dates: start: 20210706, end: 20210805
  3. HYDROXYCHLOROQUINE [Concomitant]
     Active Substance: HYDROXYCHLOROQUINE
  4. ASCORBIC ACID [Concomitant]
     Active Substance: ASCORBIC ACID
  5. FOLIC ACID [Concomitant]
     Active Substance: FOLIC ACID
  6. CETIRIZINE [Concomitant]
     Active Substance: CETIRIZINE HYDROCHLORIDE
  7. ESOMEPRAZOLE [Concomitant]
     Active Substance: ESOMEPRAZOLE
  8. ZINC [Concomitant]
     Active Substance: PYRITHIONE ZINC\ZINC\ZINC CHLORIDE
  9. PREDNISONE [Concomitant]
     Active Substance: PREDNISONE
  10. CHOLECALCIFEROL [Concomitant]
     Active Substance: CHOLECALCIFEROL
  11. NOMEGESTROL [Concomitant]
     Active Substance: NOMEGESTROL

REACTIONS (2)
  - Transaminases increased [Recovered/Resolved]
  - Intentional product use issue [Unknown]

NARRATIVE: CASE EVENT DATE: 20210805
